FAERS Safety Report 5693002-9 (Version None)
Quarter: 2008Q2

REPORT INFORMATION
  Report Type: 
  Country: None (occurrence: None)
  Receive Date: 20080401
  Receipt Date: 20080326
  Transmission Date: 20081010
  Serious: Yes (Life-Threatening, Hospitalization)
  Sender: FDA-Public Use
  Company Number: 229-C5013-07120614

PATIENT
  Age: 74 Year
  Sex: Female
  Weight: 56.1 kg

DRUGS (15)
  1. CC-5013 (LENALIDOMIDE) (CAPSULES) [Suspect]
     Indication: MULTIPLE MYELOMA
     Dosage: 25 MG, DAILY, ORAL; 25 MG, OD, ORAL, 10 MG, OD, ORAL
     Route: 048
     Dates: start: 20070628, end: 20071015
  2. CC-5013 (LENALIDOMIDE) (CAPSULES) [Suspect]
     Indication: MULTIPLE MYELOMA
     Dosage: 25 MG, DAILY, ORAL; 25 MG, OD, ORAL, 10 MG, OD, ORAL
     Route: 048
     Dates: start: 20071105, end: 20071201
  3. CC-5013 (LENALIDOMIDE) (CAPSULES) [Suspect]
     Indication: MULTIPLE MYELOMA
     Dosage: 25 MG, DAILY, ORAL; 25 MG, OD, ORAL, 10 MG, OD, ORAL
     Route: 048
     Dates: start: 20071203
  4. DEXAMETHASONE TAB [Suspect]
     Indication: MULTIPLE MYELOMA
     Dosage: 50 MG, OD, D1-4, ORAL
     Route: 048
     Dates: start: 20070628, end: 20071203
  5. G-CSF (GRANULOCYTE COLONY STIMULATING FACTOR) [Concomitant]
  6. VANCOMYCIN [Concomitant]
  7. NEORECORMIN (EPOETIN BETA) [Concomitant]
  8. ENOXAPARIN SODIUM [Concomitant]
  9. METOPROLOL TARTRATE [Concomitant]
  10. SANDOZ K (POTASSIUM CHLORIDE) [Concomitant]
  11. VALCYCLOVIR (VALACICLOVIR) [Concomitant]
  12. DIFLUCAN [Concomitant]
  13. ASCORBIC ACID [Concomitant]
  14. BACTROBAN (MUPRIOCIN) (OINTMENT) [Concomitant]
  15. ASPIRIN [Concomitant]

REACTIONS (20)
  - ATRIAL FIBRILLATION [None]
  - BLOOD POTASSIUM DECREASED [None]
  - CARDIOMEGALY [None]
  - DEAFNESS [None]
  - FEBRILE NEUTROPENIA [None]
  - HAEMODIALYSIS [None]
  - HAEMOGLOBIN DECREASED [None]
  - HEART RATE INCREASED [None]
  - HERPES SIMPLEX [None]
  - HYPERTHYROIDISM [None]
  - HYPOTENSION [None]
  - LOBAR PNEUMONIA [None]
  - MALAISE [None]
  - MUCOSAL INFLAMMATION [None]
  - NAUSEA [None]
  - NEUTROPENIC SEPSIS [None]
  - NEUTROPHIL COUNT DECREASED [None]
  - PULMONARY OEDEMA [None]
  - RENAL FAILURE ACUTE [None]
  - THROMBOCYTOPENIA [None]
